FAERS Safety Report 5148291-6 (Version None)
Quarter: 2006Q4

REPORT INFORMATION
  Report Type: 
  Country: None (occurrence: None)
  Receive Date: 20060918
  Receipt Date: 20060727
  Transmission Date: 20070319
  Serious: Yes (Hospitalization)
  Sender: FDA-Public Use
  Company Number: US-JNJFOC-20060706088

PATIENT
  Age: 28 Year
  Sex: Female

DRUGS (1)
  1. ORTHO EVRA [Suspect]
     Indication: MENSTRUAL DISORDER
     Dosage: TRANSDERMAL
     Route: 062
     Dates: start: 20050201, end: 20050601

REACTIONS (2)
  - DEEP VEIN THROMBOSIS [None]
  - MUSCLE SPASMS [None]
